FAERS Safety Report 5305407-6 (Version None)
Quarter: 2007Q2

REPORT INFORMATION
  Report Type: 
  Country: None (occurrence: None)
  Receive Date: 20070424
  Receipt Date: 20070410
  Transmission Date: 20071010
  Serious: Yes (Hospitalization)
  Sender: FDA-Public Use
  Company Number: PHHO2006US11860

PATIENT
  Age: 63 Year
  Sex: Male

DRUGS (11)
  1. ERL080 [Suspect]
     Indication: RENAL TRANSPLANT
     Dosage: 720 MG, BID
     Route: 048
     Dates: start: 20060712, end: 20060809
  2. ZOSYN [Concomitant]
  3. SOLU-MEDROL [Concomitant]
     Indication: RENAL TRANSPLANT
     Dosage: 500 MG
  4. SIMULECT [Concomitant]
     Indication: RENAL TRANSPLANT
     Dosage: 20 MG, ONCE/SINGLE
  5. TACROLIMUS [Concomitant]
     Indication: RENAL TRANSPLANT
     Dosage: 2 MG
  6. FLUID/ELECTROLYTE REPLACEMENT THERAPY [Concomitant]
  7. MORPHINE [Concomitant]
  8. LANTUS [Concomitant]
  9. INSULIN LISPRO [Concomitant]
  10. ASPIRIN [Concomitant]
  11. PREDNISONE TAB [Concomitant]
     Indication: RENAL TRANSPLANT
     Dosage: 20 MG

REACTIONS (16)
  - AGITATION [None]
  - ARTERIOVENOUS FISTULA OPERATION [None]
  - BLOOD CREATININE INCREASED [None]
  - DYSPNOEA [None]
  - HAEMATOMA EVACUATION [None]
  - HYPERKALAEMIA [None]
  - KLEBSIELLA INFECTION [None]
  - OEDEMA PERIPHERAL [None]
  - PSYCHOTIC DISORDER [None]
  - PYREXIA [None]
  - RENAL DISORDER [None]
  - RENAL HAEMATOMA [None]
  - RENAL TUBULAR NECROSIS [None]
  - TRANSPLANT REJECTION [None]
  - URINARY RETENTION [None]
  - WOUND SECRETION [None]
